FAERS Safety Report 5793067-X (Version None)
Quarter: 2008Q2

REPORT INFORMATION
  Report Type: 
  Country: None (occurrence: None)
  Receive Date: 20080627
  Receipt Date: 20080625
  Transmission Date: 20081010
  Serious: Yes (Life-Threatening, Hospitalization)
  Sender: FDA-Public Use
  Company Number: ES-BRISTOL-MYERS SQUIBB COMPANY-14242051

PATIENT
  Age: 71 Year
  Sex: Male

DRUGS (6)
  1. IRBESARTAN [Suspect]
     Indication: HYPERTENSION
     Dosage: 28 COATED TABLETS.
     Route: 048
     Dates: end: 20080307
  2. ATROVENT [Concomitant]
     Indication: CHRONIC OBSTRUCTIVE PULMONARY DISEASE
     Route: 055
  3. CARDURA [Concomitant]
     Indication: HYPERTENSION
     Dosage: 28 TABLETS
     Route: 048
  4. FORADIL [Concomitant]
     Route: 055
  5. LIBRADIN [Concomitant]
     Dosage: 56 MODIFIED RELEASE CAPSULES
     Route: 048
  6. VENTOLIN [Concomitant]
     Indication: CHRONIC OBSTRUCTIVE PULMONARY DISEASE
     Route: 055

REACTIONS (1)
  - HYPERKALAEMIA [None]
